FAERS Safety Report 6558473-4 (Version None)
Quarter: 2010Q1

REPORT INFORMATION
  Report Type: 
  Country: None (occurrence: None)
  Receive Date: 20100128
  Receipt Date: 20100128
  Transmission Date: 20100710
  Serious: Yes (Other)
  Sender: FDA-Public Use
  Company Number: None

PATIENT
  Age: 59 Year
  Sex: Male
  Weight: 92.9874 kg

DRUGS (1)
  1. FLOMAX [Suspect]
     Indication: NEPHROLITHIASIS
     Dosage: 1 PER DAY PO
     Route: 048
     Dates: start: 20100118, end: 20100125

REACTIONS (4)
  - DEAFNESS UNILATERAL [None]
  - MUSCLE TWITCHING [None]
  - TINNITUS [None]
  - VISION BLURRED [None]
